FAERS Safety Report 8127585-6 (Version None)
Quarter: 2011Q4

REPORT INFORMATION
  Report Type: 
  Country: None (occurrence: None)
  Receive Date: 20111227
  Receipt Date: 20110927
  Transmission Date: 20120403
  Serious: No
  Sender: FDA-Public Use
  Company Number: PHEH2011US02254

PATIENT
  Age: 45 Year
  Sex: Female

DRUGS (2)
  1. SYNTHROID (LEVOTHYROXINE SODIUM) TABLET [Concomitant]
  2. GILENYA [Suspect]
     Indication: MULTIPLE SCLEROSIS
     Dosage: 0.5 MG, QD, ORAL
     Route: 048
     Dates: start: 20110809

REACTIONS (8)
  - BLOOD IRON DECREASED [None]
  - HEART RATE INCREASED [None]
  - MUSCLE TIGHTNESS [None]
  - PARAESTHESIA [None]
  - BLOOD PRESSURE INCREASED [None]
  - VISION BLURRED [None]
  - HEAD DISCOMFORT [None]
  - HYPOAESTHESIA [None]
